FAERS Safety Report 12536487 (Version 2)
Quarter: 2016Q3

REPORT INFORMATION
  Report Type: Spontaneous
  Country: US (occurrence: US)
  Receive Date: 20160707
  Receipt Date: 20160714
  Transmission Date: 20161109
  Serious: No
  Sender: FDA-Public Use
  Company Number: US-PFIZER INC-2016305948

PATIENT
  Sex: Male

DRUGS (2)
  1. SILDENAFIL CITRATE. [Suspect]
     Active Substance: SILDENAFIL CITRATE
     Dosage: 200 MG, 2X/DAY/TOOK TWO IN THE AFTERNOON AND TWO AT NIGHT
  2. SILDENAFIL CITRATE. [Suspect]
     Active Substance: SILDENAFIL CITRATE
     Indication: ERECTILE DYSFUNCTION
     Dosage: 100 MG, 2X/DAY/TAKING ONE IN THE MORNING AND ONE AT NIGHT
     Dates: start: 20160605

REACTIONS (3)
  - Suspected counterfeit product [Unknown]
  - Intentional overdose [Unknown]
  - Drug ineffective [Unknown]
